FAERS Safety Report 18874242 (Version 4)
Quarter: 2021Q1

REPORT INFORMATION
  Report Type: Spontaneous
  Country: BR (occurrence: BR)
  Receive Date: 20210210
  Receipt Date: 20210301
  Transmission Date: 20210420
  Serious: Yes (Other)
  Sender: FDA-Public Use
  Company Number: BR-ASTELLAS-2021US004452

PATIENT
  Age: 71 Year
  Sex: Male

DRUGS (8)
  1. XTANDI [Suspect]
     Active Substance: ENZALUTAMIDE
     Route: 048
  2. DIPIRONA [Concomitant]
     Active Substance: METAMIZOLE
     Indication: PAIN
     Route: 048
  3. METADONA [METHADONE] [Concomitant]
     Indication: PAIN
     Route: 048
  4. ZOMETA [Concomitant]
     Active Substance: ZOLEDRONIC ACID
     Indication: NEOPLASM MALIGNANT
     Route: 042
  5. MORPHINE [Suspect]
     Active Substance: MORPHINE
     Indication: PAIN
     Route: 065
  6. MORPHINE [Suspect]
     Active Substance: MORPHINE
     Dosage: 10 MG, (EVERY 4 HOURS)
     Route: 065
  7. XTANDI [Suspect]
     Active Substance: ENZALUTAMIDE
     Indication: PROSTATE CANCER
     Route: 048
     Dates: start: 20201117
  8. ELIGARD [Concomitant]
     Active Substance: LEUPROLIDE ACETATE
     Indication: NEOPLASM MALIGNANT
     Dosage: 1 DF, OTHER (ONCE IN 3 MONTHS)
     Route: 058

REACTIONS (10)
  - Malaise [Unknown]
  - Suspected counterfeit product [Unknown]
  - Product physical issue [Unknown]
  - Product availability issue [Unknown]
  - Iron deficiency anaemia [Recovering/Resolving]
  - Malignant neoplasm progression [Unknown]
  - Condition aggravated [Recovering/Resolving]
  - Platelet count decreased [Recovering/Resolving]
  - Prostatic specific antigen increased [Recovering/Resolving]
  - Drug ineffective [Unknown]

NARRATIVE: CASE EVENT DATE: 20201117
